FAERS Safety Report 10494845 (Version 1)
Quarter: 2014Q4

REPORT INFORMATION
  Report Type: Spontaneous
  Country: US (occurrence: None)
  Receive Date: 20141001
  Receipt Date: 20141001
  Transmission Date: 20150528
  Serious: Yes (Other)
  Sender: FDA-Public Use
  Company Number: US-ZYDUS-005057

PATIENT
  Age: 61 Year
  Sex: Female

DRUGS (1)
  1. WARFARIN [Suspect]
     Active Substance: WARFARIN
     Indication: PULMONARY HYPERTENSION

REACTIONS (5)
  - Calciphylaxis [None]
  - Eschar [None]
  - Skin mass [None]
  - Fat necrosis [None]
  - Skin necrosis [None]
